FAERS Safety Report 6397351-0 (Version None)
Quarter: 2009Q4

REPORT INFORMATION
  Report Type: 
  Country: None (occurrence: None)
  Receive Date: 20091012
  Receipt Date: 20090928
  Transmission Date: 20100525
  Serious: Yes (Hospitalization, Other)
  Sender: FDA-Public Use
  Company Number: ES-GENENTECH-291766

PATIENT
  Age: 56 Year
  Sex: Female

DRUGS (3)
  1. ACTIVASE [Suspect]
     Indication: THROMBOSIS
     Dosage: 10 MG, UNK
  2. ACTIVASE [Suspect]
     Dosage: 90 MG, UNK
  3. HEPARIN SODIUM [Suspect]
     Indication: THROMBOSIS
     Dosage: UNK

REACTIONS (2)
  - HYPOTENSION [None]
  - PULMONARY EMBOLISM [None]
